FAERS Safety Report 9849396 (Version 1)
Quarter: 2014Q1

REPORT INFORMATION
  Report Type: Spontaneous
  Country: US (occurrence: US)
  Receive Date: 20140128
  Receipt Date: 20140128
  Transmission Date: 20141002
  Serious: Yes (Other)
  Sender: FDA-Public Use
  Company Number: US-PFIZER INC-2014022818

PATIENT
  Sex: 0

DRUGS (2)
  1. FLUOROURACIL [Suspect]
     Indication: ADENOCARCINOMA OF COLON
     Dosage: UNK
  2. LEVAMISOLE [Suspect]
     Indication: ADENOCARCINOMA OF COLON

REACTIONS (1)
  - Leukoencephalopathy [Recovered/Resolved]
